FAERS Safety Report 5659287-X (Version None)
Quarter: 2008Q1

REPORT INFORMATION
  Report Type: 
  Country: None (occurrence: None)
  Receive Date: 20080311
  Receipt Date: 20070914
  Transmission Date: 20080703
  Serious: Yes (Other)
  Sender: FDA-Public Use
  Company Number: US-BAYER-200712017BCC

PATIENT
  Age: 68 Year
  Sex: Male
  Weight: 75 kg

DRUGS (2)
  1. ALEVE [Suspect]
     Indication: HEADACHE
     Dosage: UNIT DOSE: 220 MG
     Route: 048
     Dates: start: 20070624
  2. HIGH BLOOD PRESSURE MEDICATION [Concomitant]

REACTIONS (4)
  - ANAPHYLACTIC SHOCK [None]
  - FEELING HOT [None]
  - HYPOTENSION [None]
  - SYNCOPE [None]
